FAERS Safety Report 5075827-6 (Version None)
Quarter: 2006Q3

REPORT INFORMATION
  Report Type: 
  Country: None (occurrence: None)
  Receive Date: 20060809
  Receipt Date: 20060804
  Transmission Date: 20061208
  Serious: Yes (Death)
  Sender: FDA-Public Use
  Company Number: 456805

PATIENT
  Age: 90 Year
  Sex: Female

DRUGS (7)
  1. CARVEDILOL [Suspect]
     Indication: CARDIAC FAILURE CHRONIC
     Route: 048
     Dates: start: 20030207, end: 20050702
  2. LASIX [Concomitant]
  3. SPIRONOLACTONE [Concomitant]
  4. 8-HOUR BAYER [Concomitant]
  5. SOFALCONE [Concomitant]
  6. ANPLAG [Concomitant]
  7. RHYTHMY [Concomitant]

REACTIONS (1)
  - DEATH [None]
